FAERS Safety Report 8732242 (Version 2)
Quarter: 2012Q4

REPORT INFORMATION
  Report Type: 
  Country: FR (occurrence: FR)
  Receive Date: 20120820
  Receipt Date: 20120904
  Transmission Date: 20130627
  Serious: Yes (Death)
  Sender: FDA-Public Use
  Company Number: FR-B.I. PHARMACEUTICALS,INC./RIDGEFIELD-2012-FF-01070FF

PATIENT
  Age: 75 Year
  Sex: Female
  Weight: 64 kg

DRUGS (1)
  1. PRADAXA [Suspect]
     Indication: ATRIAL FIBRILLATION
     Dosage: 220 mg
     Route: 048
     Dates: end: 20120714

REACTIONS (4)
  - Cardiac failure [Fatal]
  - Drug therapeutic incompatibility [Fatal]
  - Myocardial infarction [Fatal]
  - Abdominal pain upper [Unknown]
